FAERS Safety Report 12700987 (Version 1)
Quarter: 2016Q3

REPORT INFORMATION
  Report Type: Spontaneous
  Country: US (occurrence: None)
  Receive Date: 20160830
  Receipt Date: 20160830
  Transmission Date: 20161109
  Serious: Yes (Other)
  Sender: FDA-Public Use
  Company Number: None

PATIENT
  Age: 36 Year
  Sex: Female
  Weight: 62.14 kg

DRUGS (1)
  1. MIRENA [Suspect]
     Active Substance: LEVONORGESTREL

REACTIONS (17)
  - Abdominal distension [None]
  - Insomnia [None]
  - Breast tenderness [None]
  - Ovarian cyst [None]
  - Sinus disorder [None]
  - Acne [None]
  - Muscular weakness [None]
  - Myalgia [None]
  - Pain [None]
  - Anxiety [None]
  - Cyst rupture [None]
  - Dyspnoea [None]
  - Renal cancer [None]
  - Depression [None]
  - Dry skin [None]
  - Alopecia [None]
  - Vaginal haemorrhage [None]

NARRATIVE: CASE EVENT DATE: 20140805
